FAERS Safety Report 6454624-0 (Version None)
Quarter: 2009Q4

REPORT INFORMATION
  Report Type: 
  Country: None (occurrence: None)
  Receive Date: 20091118
  Receipt Date: 20091103
  Transmission Date: 20100525
  Serious: Yes (Hospitalization)
  Sender: FDA-Public Use
  Company Number: 20090528

PATIENT
  Age: 23 Year
  Sex: Male

DRUGS (2)
  1. DEXAMETHASONE SODIUM PHOSPHATE [Suspect]
     Indication: SPINAL CORD INJURY
     Dosage: 560 MG + 100 MG/HR, ,INTRAVENOUS
     Route: 042
  2. METHYLPREDNISOLONE [Suspect]
     Dosage: 5.4 MG/KG/HR

REACTIONS (5)
  - ADRENAL INSUFFICIENCY [None]
  - CENTRAL VENOUS PRESSURE INCREASED [None]
  - PNEUMONIA [None]
  - PYREXIA [None]
  - RESPIRATORY FAILURE [None]
